FAERS Safety Report 24199859 (Version 1)
Quarter: 2024Q3

REPORT INFORMATION
  Report Type: Spontaneous
  Country: US (occurrence: US)
  Receive Date: 20240812
  Receipt Date: 20240812
  Transmission Date: 20241016
  Serious: No
  Sender: PFIZER
  Company Number: US-PFIZER INC-202400233148

PATIENT
  Age: 49 Year
  Sex: Female

DRUGS (3)
  1. ZAVZPRET [Suspect]
     Active Substance: ZAVEGEPANT HYDROCHLORIDE
     Indication: Migraine
     Dosage: UNK
  2. BOTOX [Concomitant]
     Active Substance: ONABOTULINUMTOXINA
     Dosage: UNK
  3. PREDNICARBATE [Concomitant]
     Active Substance: PREDNICARBATE
     Dosage: UNK

REACTIONS (1)
  - Sneezing [Recovered/Resolved]
